FAERS Safety Report 12637098 (Version 1)
Quarter: 2016Q3

REPORT INFORMATION
  Report Type: Spontaneous
  Country: US (occurrence: US)
  Receive Date: 20160809
  Receipt Date: 20160809
  Transmission Date: 20161109
  Serious: No
  Sender: FDA-Public Use
  Company Number: US-BEH-2015052693

PATIENT
  Sex: Female
  Weight: 60 kg

DRUGS (12)
  1. PSEUDOEPHEDRINE [Concomitant]
     Active Substance: PSEUDOEPHEDRINE
  2. DIPHENHYDRAMINE. [Concomitant]
     Active Substance: DIPHENHYDRAMINE
  3. SODIUM CHLORIDE. [Concomitant]
     Active Substance: SODIUM CHLORIDE
  4. METHYLPREDNISOLONE. [Concomitant]
     Active Substance: METHYLPREDNISOLONE
  5. NICOTINE. [Concomitant]
     Active Substance: NICOTINE
  6. LUNESTA [Concomitant]
     Active Substance: ESZOPICLONE
  7. CYANOCOBALAMIN. [Concomitant]
     Active Substance: CYANOCOBALAMIN
  8. PRIVIGEN [Suspect]
     Active Substance: HUMAN IMMUNOGLOBULIN G
     Indication: IMMUNODEFICIENCY COMMON VARIABLE
     Route: 058
  9. QNASL HFA [Concomitant]
  10. VITAMIN D3 [Concomitant]
     Active Substance: CHOLECALCIFEROL
  11. PATANASE [Concomitant]
     Active Substance: OLOPATADINE HYDROCHLORIDE
  12. EPIPEN AUTOINJECTOR [Concomitant]
     Indication: ANAPHYLACTIC REACTION

REACTIONS (1)
  - Sinusitis [Unknown]
